FAERS Safety Report 5195204-7 (Version None)
Quarter: 2006Q4

REPORT INFORMATION
  Report Type: 
  Country: None (occurrence: None)
  Receive Date: 20061229
  Receipt Date: 20061013
  Transmission Date: 20070319
  Serious: Yes (Death, Hospitalization)
  Sender: FDA-Public Use
  Company Number: DE-PFIZER INC-2006125066

PATIENT
  Sex: Female
  Weight: 59 kg

DRUGS (8)
  1. SU-011,248 [Suspect]
     Indication: METASTATIC RENAL CELL CARCINOMA
     Route: 048
     Dates: start: 20060509, end: 20061011
  2. MIRTAZAPINE [Concomitant]
     Route: 048
     Dates: start: 20060301, end: 20061011
  3. PREDNISOLONE [Concomitant]
     Route: 048
     Dates: start: 20060501, end: 20061011
  4. METOCLOPRAMIDE [Concomitant]
     Route: 048
     Dates: start: 20060802, end: 20061011
  5. PANTOZOL [Concomitant]
     Route: 048
     Dates: start: 20060830, end: 20061011
  6. MARCUMAR [Concomitant]
     Route: 048
     Dates: end: 20061011
  7. EUGLUCON [Concomitant]
     Route: 048
     Dates: start: 20060315, end: 20061011
  8. KONAKION [Concomitant]
     Route: 042
     Dates: start: 20061001, end: 20061011

REACTIONS (2)
  - DEATH [None]
  - PNEUMONIA [None]
